FAERS Safety Report 20695774 (Version 1)
Quarter: 2022Q2

REPORT INFORMATION
  Report Type: Spontaneous
  Country: US (occurrence: US)
  Receive Date: 20220411
  Receipt Date: 20220411
  Transmission Date: 20220721
  Serious: No
  Sender: FDA-Public Use
  Company Number: US-AMGEN-USASP2022059162

PATIENT
  Sex: Female

DRUGS (3)
  1. KANJINTI [Suspect]
     Active Substance: TRASTUZUMAB-ANNS
     Indication: Breast cancer female
     Route: 065
  2. KANJINTI [Suspect]
     Active Substance: TRASTUZUMAB-ANNS
     Indication: Bone cancer
  3. KANJINTI [Suspect]
     Active Substance: TRASTUZUMAB-ANNS
     Indication: Malignant lymphoid neoplasm

REACTIONS (2)
  - Abdominal pain [Unknown]
  - Frequent bowel movements [Unknown]
